FAERS Safety Report 10084666 (Version 1)
Quarter: 2014Q2

REPORT INFORMATION
  Report Type: Spontaneous
  Country: BR (occurrence: None)
  Receive Date: 20140414
  Receipt Date: 20140414
  Transmission Date: 20141212
  Serious: Yes (Life-Threatening)
  Sender: FDA-Public Use
  Company Number: BR-20140021

PATIENT
  Age: 46 Year
  Sex: Female

DRUGS (2)
  1. GADOTERIC ACID [Suspect]
     Indication: NUCLEAR MAGNETIC RESONANCE IMAGING
     Dosage: 10 ML, 1 IN 1 D
     Route: 042
     Dates: start: 20140208, end: 20140208
  2. SALINE (SODIUM CHLORIDE) [Concomitant]

REACTIONS (6)
  - Bronchospasm [None]
  - Dyspnoea [None]
  - Tongue oedema [None]
  - Eyelid oedema [None]
  - Laryngeal oedema [None]
  - Urticaria [None]
